FAERS Safety Report 9575329 (Version 2)
Quarter: 2013Q4

REPORT INFORMATION
  Report Type: Report from Study
  Country: US (occurrence: US)
  Receive Date: 20131001
  Receipt Date: 20131001
  Transmission Date: 20140711
  Serious: Yes (Other)
  Sender: FDA-Public Use
  Company Number: US-ACTELION-A-NJ2011-54821

PATIENT
  Age: 76 Year
  Sex: Female

DRUGS (10)
  1. TRACLEER [Suspect]
     Indication: PULMONARY ARTERIAL HYPERTENSION
     Dosage: 125 MG, BID
     Route: 048
     Dates: start: 2007
  2. TRACLEER [Suspect]
     Dosage: UNK UNK, QD
     Route: 048
     Dates: start: 20051103
  3. ADCIRCA [Concomitant]
     Dosage: 40 MG, QD
     Dates: start: 2007
  4. TYVASO [Concomitant]
  5. ALENDRONATE [Concomitant]
     Dosage: UNK
  6. FUROSEMIDE [Concomitant]
     Dosage: 20 MG, UNK  PRN
     Dates: start: 2007
  7. AMLODIPINE [Concomitant]
     Dosage: 5 MG, QD
     Dates: start: 2007
  8. VITAMIN D [Concomitant]
     Dosage: 5000 I/U, Q1WEEK
  9. METFORMIN [Concomitant]
     Indication: ESSENTIAL HYPERTENSION
     Dosage: 500 MG, QD
     Dates: start: 2007
  10. CALCIUM [Concomitant]
     Dosage: 600 MG, BID
     Dates: start: 2007

REACTIONS (5)
  - Cyst [Recovered/Resolved]
  - Vision blurred [Not Recovered/Not Resolved]
  - Eye operation [Recovered/Resolved]
  - Glaucoma [Recovered/Resolved]
  - Eye disorder [Recovered/Resolved]
